FAERS Safety Report 10270391 (Version 1)
Quarter: 2014Q2

REPORT INFORMATION
  Report Type: Report from Study
  Country: CA (occurrence: None)
  Receive Date: 20140627
  Receipt Date: 20140627
  Transmission Date: 20141212
  Serious: Yes (Other)
  Sender: FDA-Public Use
  Company Number: 2014000196

PATIENT
  Age: 76 Year
  Sex: Female
  Weight: 60 kg

DRUGS (1)
  1. ACEON (PERINDOPRIL ERBUMINE) TABLET, 4MG [Suspect]
     Indication: HYPERTENSION
     Route: 048
     Dates: start: 20120423, end: 20120821

REACTIONS (2)
  - Hypertension [None]
  - Hyperkalaemia [None]
